FAERS Safety Report 8923692 (Version 1)
Quarter: 2012Q4

REPORT INFORMATION
  Report Type: 
  Country: US (occurrence: None)
  Receive Date: 20121109
  Receipt Date: 20121109
  Transmission Date: 20130627
  Serious: Yes (Hospitalization)
  Sender: FDA-Public Use
  Company Number: 2012S1000219

PATIENT
  Age: 23 Year
  Sex: Female
  Weight: 31.75 kg

DRUGS (5)
  1. CUBICIN [Suspect]
     Indication: ENDOCARDITIS INFECTIVE
     Route: 042
     Dates: start: 20120110, end: 20120110
  2. VANCOMYCIN [Concomitant]
  3. METHADONE [Concomitant]
  4. FLAGYL [Concomitant]
  5. FLUCONAZOLE [Concomitant]

REACTIONS (1)
  - Hypersensitivity [None]
